FAERS Safety Report 6912070-7 (Version None)
Quarter: 2010Q3

REPORT INFORMATION
  Report Type: 
  Country: None (occurrence: None)
  Receive Date: 20100806
  Receipt Date: 20071128
  Transmission Date: 20110219
  Serious: No
  Sender: FDA-Public Use
  Company Number: US-PFIZER INC-2007087006

PATIENT
  Sex: Male
  Weight: 73.03 kg

DRUGS (2)
  1. DETROL LA [Suspect]
     Indication: BLADDER DISORDER
     Dates: start: 20070901
  2. TAMSULOSIN HCL [Concomitant]

REACTIONS (5)
  - DIARRHOEA [None]
  - DRUG EFFECT DECREASED [None]
  - DRY MOUTH [None]
  - OROPHARYNGEAL PAIN [None]
  - PRURITUS [None]
